FAERS Safety Report 14893906 (Version 2)
Quarter: 2019Q1

REPORT INFORMATION
  Report Type: Report from Study
  Country: CA (occurrence: CA)
  Receive Date: 20180514
  Receipt Date: 20190222
  Transmission Date: 20190417
  Serious: Yes (Other)
  Sender: FDA-Public Use
  Company Number: CA-SA-2018SA095050

PATIENT
  Age: 37 Year
  Sex: Male

DRUGS (16)
  1. RANITIDINE. [Concomitant]
     Active Substance: RANITIDINE
     Dosage: 150 MG,UNK
     Route: 048
     Dates: start: 20180326, end: 20180328
  2. REACTINE [CETIRIZINE HYDROCHLORIDE] [Concomitant]
     Active Substance: CETIRIZINE HYDROCHLORIDE
     Dosage: 10 MG,UNK
     Route: 048
     Dates: start: 20180326, end: 20180328
  3. ERGOCALCIFEROL. [Concomitant]
     Active Substance: ERGOCALCIFEROL
     Dosage: UNK UNK,QD
     Route: 048
  4. PANTECTA [Concomitant]
     Active Substance: PANTOPRAZOLE SODIUM
     Dosage: UNK UNK,QD
     Route: 048
  5. AMANTADINE. [Concomitant]
     Active Substance: AMANTADINE HYDROCHLORIDE
     Dosage: UNK UNK,QD
     Route: 048
  6. ALEMTUZUMAB [Suspect]
     Active Substance: ALEMTUZUMAB
     Indication: RELAPSING-REMITTING MULTIPLE SCLEROSIS
     Dosage: 12 MG,QD
     Route: 041
     Dates: start: 20180326, end: 20180328
  7. SEROQUEL [Concomitant]
     Active Substance: QUETIAPINE FUMARATE
     Dosage: UNK UNK,QD
     Route: 048
  8. METHYLPREDNISOLONE. [Concomitant]
     Active Substance: METHYLPREDNISOLONE
     Dosage: 1 G,UNK
     Route: 042
     Dates: start: 20180326, end: 20180328
  9. GRAVOL [Concomitant]
     Active Substance: DIMENHYDRINATE
     Dosage: 50 MG,UNK
     Route: 042
     Dates: start: 20180326
  10. GRAVOL [Concomitant]
     Active Substance: DIMENHYDRINATE
     Dosage: 50 MG,UNK
     Route: 042
     Dates: start: 20180326
  11. CYANOCOBALAMIN. [Concomitant]
     Active Substance: CYANOCOBALAMIN
     Dosage: UNK UNK,QD
     Route: 048
  12. LAMOTRIGINE. [Concomitant]
     Active Substance: LAMOTRIGINE
     Dosage: UNK UNK,QD
     Route: 048
  13. BENADRYL [Concomitant]
     Active Substance: DIPHENHYDRAMINE HYDROCHLORIDE
     Dosage: UNK UNK,UNK
     Route: 048
     Dates: start: 20180326, end: 20180327
  14. ACICLOVIR [Concomitant]
     Active Substance: ACYCLOVIR
     Dosage: 200 MG,BID
     Route: 048
     Dates: start: 20180326
  15. PARACETAMOL [Concomitant]
     Active Substance: ACETAMINOPHEN
     Dosage: UNK UNK,UNK
     Route: 048
     Dates: start: 20180326
  16. SYNTHROID [Concomitant]
     Active Substance: LEVOTHYROXINE SODIUM
     Dosage: UNK UNK,QD
     Route: 048

REACTIONS (16)
  - Snoring [Recovered/Resolved]
  - Chills [Recovered/Resolved]
  - Infusion site extravasation [Recovered/Resolved]
  - Cellulitis [Recovered/Resolved]
  - Infusion site swelling [Recovered/Resolved with Sequelae]
  - Oropharyngeal pain [Not Recovered/Not Resolved]
  - Pyrexia [Recovered/Resolved]
  - Hypertension [Recovered/Resolved]
  - Feeling hot [Recovered/Resolved]
  - Tachypnoea [Recovered/Resolved]
  - Tachycardia [Recovered/Resolved]
  - Nausea [Recovered/Resolved]
  - Headache [Unknown]
  - Asthenia [Recovered/Resolved]
  - Insomnia [Recovered/Resolved]
  - Dyspepsia [Recovered/Resolved]

NARRATIVE: CASE EVENT DATE: 2018
